FAERS Safety Report 9247549 (Version 2)
Quarter: 2013Q3

REPORT INFORMATION
  Report Type: Report from Study
  Country: BR (occurrence: BR)
  Receive Date: 20130423
  Receipt Date: 20130731
  Transmission Date: 20140515
  Serious: Yes (Other)
  Sender: FDA-Public Use
  Company Number: PHHY2013BR038888

PATIENT
  Sex: Female
  Weight: 86 kg

DRUGS (8)
  1. GILENYA [Suspect]
     Indication: MULTIPLE SCLEROSIS
     Dosage: 0.5 MG, QD
     Route: 048
  2. METICORTEN [Concomitant]
     Indication: CONVULSION
  3. MACRODANTINA [Concomitant]
     Indication: URINARY INCONTINENCE
     Dosage: 1 DF, UNK
     Route: 048
  4. MACRODANTINA [Concomitant]
     Dosage: 2 DF, UNK
     Route: 048
  5. OCUVITE LUTEIN                     /02380501/ [Concomitant]
  6. VIT C [Concomitant]
  7. VIT D [Concomitant]
  8. ARTROLIVE [Concomitant]
     Indication: OSTEOARTHRITIS

REACTIONS (12)
  - Balance disorder [Not Recovered/Not Resolved]
  - Limb deformity [Not Recovered/Not Resolved]
  - Foot deformity [Not Recovered/Not Resolved]
  - Gait disturbance [Not Recovered/Not Resolved]
  - Condition aggravated [Unknown]
  - Urinary incontinence [Not Recovered/Not Resolved]
  - Urinary tract infection [Recovered/Resolved]
  - Pyrexia [Unknown]
  - Arthralgia [Recovering/Resolving]
  - Fatigue [Not Recovered/Not Resolved]
  - Influenza [Recovered/Resolved]
  - Fungal infection [Unknown]
